FAERS Safety Report 5566819-9 (Version None)
Quarter: 2007Q4

REPORT INFORMATION
  Report Type: 
  Country: None (occurrence: None)
  Receive Date: 20071219
  Receipt Date: 20071217
  Transmission Date: 20080405
  Serious: Yes (Other)
  Sender: FDA-Public Use
  Company Number: B0500074A

PATIENT
  Age: 63 Year
  Sex: Female
  Weight: 65 kg

DRUGS (6)
  1. CEFUROXIME SODIUM [Suspect]
     Indication: ANTIBIOTIC PROPHYLAXIS
     Route: 042
     Dates: start: 20071121, end: 20071122
  2. ONDANSETRON [Suspect]
     Indication: NAUSEA
     Route: 042
     Dates: start: 20071122, end: 20071122
  3. OXYNORM [Suspect]
     Indication: PAIN
     Route: 048
     Dates: start: 20071122, end: 20071122
  4. SIMVASTATIN [Concomitant]
     Dosage: 40MG PER DAY
     Route: 048
  5. TRAMADOL HCL [Concomitant]
     Route: 048
  6. DICLOFENAC [Concomitant]
     Dosage: 75MG PER DAY
     Route: 048

REACTIONS (2)
  - RASH [None]
  - SWELLING FACE [None]
